FAERS Safety Report 5191959-6 (Version None)
Quarter: 2006Q4

REPORT INFORMATION
  Report Type: 
  Country: None (occurrence: None)
  Receive Date: 20061227
  Receipt Date: 20061215
  Transmission Date: 20070319
  Serious: Yes (Hospitalization)
  Sender: FDA-Public Use
  Company Number: FR-BAYER-200611210BFR

PATIENT
  Age: 81 Year
  Sex: Female

DRUGS (11)
  1. ACARBOSE [Suspect]
     Indication: UNEVALUABLE EVENT
     Route: 048
     Dates: end: 20061105
  2. LASIX [Suspect]
     Indication: UNEVALUABLE EVENT
     Route: 048
  3. LASIX [Suspect]
     Route: 048
  4. LEVOTHYROXINE SODIUM [Suspect]
     Indication: UNEVALUABLE EVENT
     Route: 048
  5. LEVOTHYROXINE SODIUM [Suspect]
     Route: 048
  6. NOVONORM [Suspect]
     Indication: UNEVALUABLE EVENT
     Dates: end: 20061105
  7. FOSINOPRIL SODIUM [Suspect]
     Indication: UNEVALUABLE EVENT
     Route: 048
     Dates: start: 20060915, end: 20061105
  8. HYDREA [Concomitant]
     Indication: UNEVALUABLE EVENT
  9. AVLOCARDYL [Concomitant]
     Indication: UNEVALUABLE EVENT
  10. PREVISCAN [Concomitant]
     Indication: UNEVALUABLE EVENT
  11. INIPOMP [Concomitant]
     Indication: UNEVALUABLE EVENT

REACTIONS (1)
  - RENAL FAILURE ACUTE [None]
